FAERS Safety Report 8511249-0 (Version None)
Quarter: 2012Q3

REPORT INFORMATION
  Report Type: 
  Country: None (occurrence: None)
  Receive Date: 20120716
  Receipt Date: 20120706
  Transmission Date: 20120928
  Serious: No
  Sender: FDA-Public Use
  Company Number: US-BAYER-2012-068716

PATIENT

DRUGS (2)
  1. IBUPROFEN (ADVIL) [Concomitant]
     Dosage: 3 DF, UNK
  2. ALEVE (CAPLET) [Suspect]
     Indication: PAIN
     Dosage: 4 DF, UNK
     Route: 048

REACTIONS (1)
  - PAIN [None]
